FAERS Safety Report 22068147 (Version 4)
Quarter: 2023Q2

REPORT INFORMATION
  Report Type: Spontaneous
  Country: US (occurrence: US)
  Receive Date: 20230307
  Receipt Date: 20230401
  Transmission Date: 20230721
  Serious: Yes (Hospitalization, Other)
  Sender: FDA-Public Use
  Company Number: US-IPSEN Group, Research and Development-2023-04870

PATIENT
  Age: 70 Year
  Sex: Male
  Weight: 75.7 kg

DRUGS (12)
  1. ONIVYDE [Suspect]
     Active Substance: IRINOTECAN HYDROCHLORIDE
     Indication: Oesophageal carcinoma
     Dosage: SINGLE CYCLE
     Route: 041
     Dates: start: 20230214, end: 20230214
  2. ONIVYDE [Suspect]
     Active Substance: IRINOTECAN HYDROCHLORIDE
     Indication: Off label use
  3. FLUOROURACIL [Concomitant]
     Active Substance: FLUOROURACIL
     Dates: start: 20230214, end: 20230216
  4. OXALIPLATIN [Concomitant]
     Active Substance: OXALIPLATIN
     Dates: start: 20230214, end: 20230214
  5. PROSCAR [Concomitant]
     Active Substance: FINASTERIDE
     Dates: start: 20220912
  6. RAPAFLO [Concomitant]
     Active Substance: SILODOSIN
     Dates: start: 20220912
  7. DECADRON [Concomitant]
     Active Substance: DEXAMETHASONE
     Dates: start: 20221227
  8. IMODIUM [Concomitant]
     Active Substance: LOPERAMIDE HYDROCHLORIDE
     Dates: start: 20221227
  9. COMPAZINE [Concomitant]
     Active Substance: PROCHLORPERAZINE MALEATE
     Dates: start: 20221227
  10. ZOFRAN [Concomitant]
     Active Substance: ONDANSETRON HYDROCHLORIDE
     Dates: start: 20221227
  11. OXYCODONE [Concomitant]
     Active Substance: OXYCODONE
     Dosage: IMMEDIATE RELEASE TABLET
     Dates: start: 20230105
  12. LOMOTIL [Concomitant]
     Active Substance: ATROPINE SULFATE\DIPHENOXYLATE HYDROCHLORIDE
     Dosage: DIPHENOXYLATE-ATROPINE (LOMOTIL) 2.5-0.025 MG PER
     Dates: start: 20230219

REACTIONS (27)
  - Enterocolitis [Unknown]
  - Acute kidney injury [Unknown]
  - Delirium [Recovering/Resolving]
  - Hypokalaemia [Unknown]
  - Ileus [Unknown]
  - Oesophageal obstruction [Recovering/Resolving]
  - Asthenia [Unknown]
  - Decreased appetite [Recovering/Resolving]
  - Dizziness [Unknown]
  - Back pain [Recovering/Resolving]
  - Peripheral sensory neuropathy [Unknown]
  - Blood creatinine increased [Unknown]
  - Confusional state [Recovering/Resolving]
  - Skin ulcer [Unknown]
  - Nausea [Unknown]
  - Upper respiratory tract infection [Unknown]
  - Abdominal pain [Unknown]
  - Confusional state [Recovering/Resolving]
  - Fatigue [Unknown]
  - Abdominal pain [Unknown]
  - Diarrhoea [Not Recovered/Not Resolved]
  - Stomatitis [Unknown]
  - Anaemia [Unknown]
  - Dehydration [Unknown]
  - Vomiting [Unknown]
  - COVID-19 [Unknown]
  - Off label use [Unknown]

NARRATIVE: CASE EVENT DATE: 20230222
